FAERS Safety Report 6887143-8 (Version None)
Quarter: 2010Q3

REPORT INFORMATION
  Report Type: 
  Country: None (occurrence: None)
  Receive Date: 20100730
  Receipt Date: 20100720
  Transmission Date: 20110219
  Serious: Yes (Other)
  Sender: FDA-Public Use
  Company Number: US-PFIZER INC-2010090822

PATIENT
  Sex: Female
  Weight: 82.086 kg

DRUGS (13)
  1. CHANTIX [Suspect]
     Indication: SMOKING CESSATION THERAPY
     Dosage: UNK
     Route: 048
  2. CHANTIX [Suspect]
     Dosage: UNK
     Route: 048
     Dates: start: 20100715, end: 20100701
  3. CHANTIX [Suspect]
     Dosage: UNK
     Route: 048
     Dates: start: 20100701, end: 20100719
  4. KLONOPIN [Concomitant]
     Indication: ANXIETY
     Dosage: 1 MG, 2X/DAY
     Route: 048
  5. REMERON [Concomitant]
     Indication: DEPRESSION
     Dosage: 30 MG, 1X/DAY
     Route: 048
  6. ALBUTEROL SULFATE [Concomitant]
     Indication: ASTHMA
     Dosage: UNK
     Route: 055
  7. ADVAIR DISKUS 100/50 [Concomitant]
     Indication: ASTHMA
     Dosage: UNK
     Route: 055
  8. MONTELUKAST SODIUM [Concomitant]
     Indication: ASTHMA
     Dosage: UNK
     Route: 055
  9. ALLEGRA [Concomitant]
     Indication: HYPERSENSITIVITY
     Dosage: UNK
     Route: 048
  10. FLUTICASONE [Concomitant]
     Indication: HYPERSENSITIVITY
     Dosage: UNK
     Route: 045
  11. OSTEO BI-FLEX [Concomitant]
     Indication: ARTHROPATHY
     Dosage: UNK
     Dates: start: 20100101
  12. CALCIUM WITH VITAMIN D [Concomitant]
     Indication: BONE DISORDER
     Dosage: UNK
  13. ACETYLSALICYLIC ACID [Concomitant]
     Dosage: 81 MG, UNK
     Route: 048

REACTIONS (8)
  - ABNORMAL DREAMS [None]
  - COGNITIVE DISORDER [None]
  - CONFUSIONAL STATE [None]
  - DISORIENTATION [None]
  - DISTURBANCE IN ATTENTION [None]
  - HALLUCINATION [None]
  - HEADACHE [None]
  - MOOD ALTERED [None]
